FAERS Safety Report 8440950-2 (Version None)
Quarter: 2012Q2

REPORT INFORMATION
  Report Type: 
  Country: None (occurrence: None)
  Receive Date: 20120615
  Receipt Date: 20110620
  Transmission Date: 20120825
  Serious: No
  Sender: FDA-Public Use
  Company Number: US-NOVEN-11US002670

PATIENT

DRUGS (3)
  1. REMERON [Suspect]
     Indication: INSOMNIA
     Dosage: UNK
     Route: 048
  2. REMERON [Suspect]
     Indication: DECREASED APPETITE
  3. DAYTRANA [Suspect]
     Indication: ATTENTION DEFICIT/HYPERACTIVITY DISORDER
     Dosage: 15 MG, UNK
     Route: 062
     Dates: start: 20110612

REACTIONS (4)
  - NO ADVERSE EVENT [None]
  - DRUG ADMINISTRATION ERROR [None]
  - PRODUCT QUALITY ISSUE [None]
  - INCORRECT DRUG ADMINISTRATION DURATION [None]
